FAERS Safety Report 8536503-8 (Version None)
Quarter: 2012Q3

REPORT INFORMATION
  Report Type: 
  Country: None (occurrence: None)
  Receive Date: 20120725
  Receipt Date: 20120723
  Transmission Date: 20120928
  Serious: Yes (Death)
  Sender: FDA-Public Use
  Company Number: PHHY2012CA048544

PATIENT
  Sex: Female

DRUGS (17)
  1. ALPHAGAN [Concomitant]
  2. IBUPROFEN [Concomitant]
  3. VITAMIN D [Concomitant]
  4. EFFEXOR [Concomitant]
  5. TRYPTOPHAN [Concomitant]
  6. CALCIUM [Concomitant]
  7. PANTOPRAZOLE SODIUM [Concomitant]
  8. ACTONEL [Concomitant]
  9. CLOZARIL [Suspect]
     Indication: DEMENTIA
     Route: 048
     Dates: start: 20080612
  10. CLOZARIL [Suspect]
     Dosage: 75 MG, DAILY
     Route: 048
  11. TIMOPTIC [Concomitant]
  12. MOTILIUM [Concomitant]
  13. SORBITOL 50PC INJ [Concomitant]
  14. ALTACE [Concomitant]
  15. SENOKOT [Concomitant]
  16. SINEMET [Concomitant]
  17. B12 ^RECIP^ [Concomitant]

REACTIONS (1)
  - MYOCARDIAL INFARCTION [None]
